FAERS Safety Report 20751552 (Version 1)
Quarter: 2022Q2

REPORT INFORMATION
  Report Type: Other
  Country: KR (occurrence: None)
  Receive Date: 20220426
  Receipt Date: 20220426
  Transmission Date: 20220720
  Serious: Yes (Hospitalization)
  Sender: FDA-Public Use
  Company Number: KR-ROCHE-3080063

PATIENT
  Age: 50 Year
  Sex: Male
  Weight: 75.7 kg

DRUGS (13)
  1. ATEZOLIZUMAB [Suspect]
     Active Substance: ATEZOLIZUMAB
     Indication: Hepatocellular carcinoma
     Route: 041
     Dates: start: 20211116
  2. BEVACIZUMAB [Suspect]
     Active Substance: BEVACIZUMAB
     Indication: Hepatocellular carcinoma
     Route: 042
     Dates: start: 20211116
  3. TARGIN PR [Concomitant]
     Dosage: 10/5MG
     Dates: start: 20211111
  4. OXYCODONE HYDROCHLORIDE [Concomitant]
     Active Substance: OXYCODONE HYDROCHLORIDE
     Dates: start: 20211111
  5. VIREAD [Concomitant]
     Active Substance: TENOFOVIR DISOPROXIL FUMARATE
  6. URSODIOL [Concomitant]
     Active Substance: URSODIOL
  7. PROPRANOLOL HYDROCHLORIDE [Concomitant]
     Active Substance: PROPRANOLOL HYDROCHLORIDE
     Dates: start: 20211111
  8. DEXILANT [Concomitant]
     Active Substance: DEXLANSOPRAZOLE
  9. FENTANYL [Concomitant]
     Active Substance: FENTANYL
     Dosage: 12MCG/H 5.25
     Dates: start: 20211112
  10. ALBUMIN HUMAN [Concomitant]
     Active Substance: ALBUMIN HUMAN
     Dates: start: 20211125, end: 20211202
  11. LASIX [Concomitant]
     Active Substance: FUROSEMIDE
     Dates: start: 20211125, end: 20211202
  12. ABSTRAL [Concomitant]
     Active Substance: FENTANYL CITRATE
     Route: 048
     Dates: start: 20211201, end: 20211202
  13. NAXEN-F [Concomitant]
     Route: 048
     Dates: start: 20211129, end: 20211202

REACTIONS (3)
  - Ascites [Recovered/Resolved]
  - Pyrexia [Recovered/Resolved]
  - Decreased appetite [Recovering/Resolving]

NARRATIVE: CASE EVENT DATE: 20211122
